FAERS Safety Report 25108863 (Version 3)
Quarter: 2025Q4

REPORT INFORMATION
  Report Type: Report from Study
  Country: CL (occurrence: CL)
  Receive Date: 20250322
  Receipt Date: 20251126
  Transmission Date: 20260118
  Serious: Yes (Other)
  Sender: SANDOZ
  Company Number: CL-SANDOZ-SDZ2025CL017461

PATIENT
  Age: 10 Year
  Sex: Female

DRUGS (2)
  1. OMNITROPE [Suspect]
     Active Substance: SOMATROPIN
     Indication: Short stature
     Dosage: 0.9 MG, QD (10 MG)
     Route: 058
     Dates: start: 20240914
  2. OMNITROPE [Suspect]
     Active Substance: SOMATROPIN
     Dosage: 2.7 IU, QD
     Route: 058
     Dates: start: 20240916

REACTIONS (2)
  - Radiculopathy [Unknown]
  - Tenoplasty [Unknown]

NARRATIVE: CASE EVENT DATE: 20250901
